FAERS Safety Report 5972067-0 (Version None)
Quarter: 2008Q4

REPORT INFORMATION
  Report Type: 
  Country: None (occurrence: None)
  Receive Date: 20081201
  Receipt Date: 20080402
  Transmission Date: 20090506
  Serious: No
  Sender: FDA-Public Use
  Company Number: US-TEVA-169590USA

PATIENT
  Sex: Female

DRUGS (5)
  1. SALBUTAMOL SULFATE INHALATION, 0.09 MG [Suspect]
     Dosage: 2 PUFFS TID
     Route: 055
     Dates: start: 20080301
  2. PREDNISONE TAB [Concomitant]
  3. FLUOXETINE HYDROCHLORIDE [Concomitant]
  4. METOPROLOL SUCCINATE [Concomitant]
  5. TETRYZOLINE HYDROCHLORIDE [Concomitant]
     Indication: GLAUCOMA

REACTIONS (3)
  - CHEST DISCOMFORT [None]
  - DRUG INEFFECTIVE [None]
  - PAIN IN EXTREMITY [None]
